FAERS Safety Report 16665069 (Version 2)
Quarter: 2021Q3

REPORT INFORMATION
  Report Type: Spontaneous
  Country: US (occurrence: US)
  Receive Date: 20190803
  Receipt Date: 20210806
  Transmission Date: 20211014
  Serious: Yes (Other)
  Sender: FDA-Public Use
  Company Number: US-ACCORD-072878

PATIENT
  Age: 65 Year
  Sex: Female
  Weight: 86.18 kg

DRUGS (5)
  1. TELMISARTAN. [Concomitant]
     Active Substance: TELMISARTAN
     Dosage: 20 MG
  2. RANITIDINE. [Concomitant]
     Active Substance: RANITIDINE
     Dosage: 150MG
  3. DOCETAXEL ACCORD [Suspect]
     Active Substance: DOCETAXEL
     Indication: BREAST CANCER
     Dates: start: 20141229, end: 20150513
  4. VESICARE [Concomitant]
     Active Substance: SOLIFENACIN SUCCINATE
     Dosage: 10MG
  5. PAROXETINE. [Concomitant]
     Active Substance: PAROXETINE
     Dosage: 40MG

REACTIONS (1)
  - Alopecia [Not Recovered/Not Resolved]
